FAERS Safety Report 12354887 (Version 1)
Quarter: 2016Q2

REPORT INFORMATION
  Report Type: Spontaneous
  Country: US (occurrence: None)
  Receive Date: 20160510
  Receipt Date: 20160510
  Transmission Date: 20160815
  Serious: Yes (Hospitalization)
  Sender: FDA-Public Use
  Company Number: None

PATIENT
  Age: 55 Year
  Sex: Male

DRUGS (1)
  1. CLONAZEPAM. [Suspect]
     Active Substance: CLONAZEPAM
     Dates: start: 20150731, end: 20160227

REACTIONS (5)
  - Confusional state [None]
  - Disorientation [None]
  - Physical assault [None]
  - Hypotension [None]
  - Agitation [None]

NARRATIVE: CASE EVENT DATE: 20160302
